FAERS Safety Report 4923526-0 (Version None)
Quarter: 2006Q1

REPORT INFORMATION
  Report Type: 
  Country: None (occurrence: None)
  Receive Date: 20060221
  Receipt Date: 20060209
  Transmission Date: 20060701
  Serious: Yes (Other)
  Sender: FDA-Public Use
  Company Number: 222059

PATIENT

DRUGS (1)
  1. RITUXAN                             (RITUXIMAB) [Suspect]

REACTIONS (1)
  - STEVENS-JOHNSON SYNDROME [None]
